FAERS Safety Report 7680565-7 (Version None)
Quarter: 2011Q3

REPORT INFORMATION
  Report Type: 
  Country: None (occurrence: None)
  Receive Date: 20110812
  Receipt Date: 20110801
  Transmission Date: 20111222
  Serious: Yes (Other)
  Sender: FDA-Public Use
  Company Number: BE-JNJFOC-20110707463

PATIENT
  Age: 51 Year
  Sex: Male
  Weight: 82 kg

DRUGS (2)
  1. STELARA [Suspect]
     Indication: PRODUCT USED FOR UNKNOWN INDICATION
     Route: 058
     Dates: start: 20110301
  2. STELARA [Suspect]
     Route: 058

REACTIONS (1)
  - B-CELL LYMPHOMA [None]
